FAERS Safety Report 9526236 (Version 4)
Quarter: 2013Q4

REPORT INFORMATION
  Report Type: Spontaneous
  Country: US (occurrence: US)
  Receive Date: 20130916
  Receipt Date: 20131227
  Transmission Date: 20140711
  Serious: Yes (Hospitalization, Other)
  Sender: FDA-Public Use
  Company Number: US-BAYER-2013-111288

PATIENT
  Age: 22 Year
  Sex: Female
  Weight: 124.72 kg

DRUGS (9)
  1. MIRENA [Suspect]
     Indication: CONTRACEPTION
     Dosage: 20 MCG/24HR, CONT
     Route: 015
     Dates: start: 20100222, end: 20110811
  2. ADDERALL [Concomitant]
     Indication: SLEEP DISORDER
     Dosage: UNK
     Dates: start: 201203, end: 201310
  3. ADDERALL [Concomitant]
     Indication: SLEEP DISORDER
     Dosage: UNK
     Route: 048
     Dates: start: 20110710
  4. HYDROCODONE [Concomitant]
     Indication: NEURALGIA
     Dosage: UNK
     Dates: start: 2010, end: 201309
  5. SYNTHROID [Concomitant]
     Indication: HYPOTHYROIDISM
     Dosage: UNK
     Dates: start: 2005
  6. SYNTHROID [Concomitant]
     Indication: HYPOTHYROIDISM
     Dosage: UNK
     Route: 048
     Dates: start: 20110710
  7. ACETAMINOPHEN W/HYDROCODONE [Concomitant]
  8. CIPROFLOXACIN [Concomitant]
  9. FLAGYL [Concomitant]

REACTIONS (8)
  - Uterine perforation [None]
  - Pelvic inflammatory disease [None]
  - Injury [None]
  - Pain [None]
  - Emotional distress [None]
  - Device dislocation [None]
  - Depression [None]
  - Anxiety [None]
